FAERS Safety Report 20834378 (Version 1)
Quarter: 2022Q2

REPORT INFORMATION
  Report Type: Other
  Country: JP (occurrence: None)
  Receive Date: 20220516
  Receipt Date: 20220516
  Transmission Date: 20220721
  Serious: Yes (Death)
  Sender: FDA-Public Use
  Company Number: JP-ROCHE-3096247

PATIENT
  Age: 7 Decade
  Sex: Male

DRUGS (12)
  1. RITUXIMAB [Suspect]
     Active Substance: RITUXIMAB
     Indication: Extranodal marginal zone B-cell lymphoma (MALT type)
     Dosage: DAY 1, SIX COURSES
     Route: 041
  2. TOCILIZUMAB [Suspect]
     Active Substance: TOCILIZUMAB
     Indication: COVID-19
     Dosage: SINGLE DOSE
     Route: 042
  3. TOCILIZUMAB [Suspect]
     Active Substance: TOCILIZUMAB
     Indication: Cytokine storm
  4. BENDAMUSTINE [Suspect]
     Active Substance: BENDAMUSTINE
     Indication: Extranodal marginal zone B-cell lymphoma (MALT type)
     Dosage: DAYS 1 AND 2, SIX COURSES
     Route: 065
  5. PFIZER-BIONTECH COVID-19 VACCINE [Suspect]
     Active Substance: TOZINAMERAN
     Indication: COVID-19 prophylaxis
     Route: 065
  6. METHYLPREDNISOLONE [Suspect]
     Active Substance: METHYLPREDNISOLONE
     Indication: COVID-19
     Route: 065
  7. METHYLPREDNISOLONE [Suspect]
     Active Substance: METHYLPREDNISOLONE
     Route: 065
  8. METHYLPREDNISOLONE [Suspect]
     Active Substance: METHYLPREDNISOLONE
     Route: 065
  9. HEPARIN [Concomitant]
     Active Substance: HEPARIN SODIUM
     Dosage: 10000U
     Route: 058
  10. HEPARIN [Concomitant]
     Active Substance: HEPARIN SODIUM
     Dosage: 400U/HR
     Route: 042
  11. PIPERACILLIN AND TAZOBACTAM [Concomitant]
     Active Substance: PIPERACILLIN SODIUM\TAZOBACTAM SODIUM
  12. AMPICILLIN SODIUM\SULBACTAM SODIUM [Concomitant]
     Active Substance: AMPICILLIN SODIUM\SULBACTAM SODIUM

REACTIONS (10)
  - COVID-19 [Fatal]
  - Cytokine storm [Fatal]
  - Pneumothorax [Fatal]
  - Acute respiratory distress syndrome [Fatal]
  - Superinfection bacterial [Fatal]
  - Vaccination failure [Fatal]
  - SARS-CoV-2 RNA increased [Fatal]
  - Immunodeficiency [Fatal]
  - Drug interaction [Fatal]
  - Off label use [Fatal]
